FAERS Safety Report 5922475-9 (Version None)
Quarter: 2008Q3

REPORT INFORMATION
  Report Type: 
  Country: None (occurrence: None)
  Receive Date: 20080909
  Receipt Date: 20080428
  Transmission Date: 20090109
  Serious: Yes (Disabling, Other)
  Sender: FDA-Public Use
  Company Number: 163-20785-02120312

PATIENT
  Age: 61 Year
  Sex: Female

DRUGS (13)
  1. THALOMID [Suspect]
     Indication: MULTIPLE MYELOMA
     Dosage: 50 MG, 1 IN 1 D, ORAL : 50-400MG, DAILY, ORAL : 250MG, DAILY, ORAL
     Route: 048
     Dates: start: 20010825, end: 20010101
  2. THALOMID [Suspect]
     Indication: MULTIPLE MYELOMA
     Dosage: 50 MG, 1 IN 1 D, ORAL : 50-400MG, DAILY, ORAL : 250MG, DAILY, ORAL
     Route: 048
     Dates: start: 20040529, end: 20051101
  3. THALOMID [Suspect]
     Indication: MULTIPLE MYELOMA
     Dosage: 50 MG, 1 IN 1 D, ORAL : 50-400MG, DAILY, ORAL : 250MG, DAILY, ORAL
     Route: 048
     Dates: start: 20080321
  4. TRAZODONE HCL [Concomitant]
  5. BUSPAR [Concomitant]
  6. PROMETRIUM [Concomitant]
  7. AREDIA [Concomitant]
  8. HERBALS (HERBAL PREPARATION) [Concomitant]
  9. TRIETTE (EUGYNON) [Concomitant]
  10. THYROID TAB [Concomitant]
  11. WARFARIN SODIUM [Concomitant]
  12. CELEXA [Concomitant]
  13. OMEPRAZOLE [Concomitant]

REACTIONS (9)
  - FALL [None]
  - HYPOAESTHESIA [None]
  - NASOPHARYNGITIS [None]
  - NERVE INJURY [None]
  - NEUROPATHY PERIPHERAL [None]
  - ONYCHOMYCOSIS [None]
  - PERONEAL NERVE PALSY [None]
  - TENSION [None]
  - URINARY INCONTINENCE [None]
